FAERS Safety Report 13821577 (Version 4)
Quarter: 2019Q4

REPORT INFORMATION
  Report Type: Report from Study
  Country: KR (occurrence: KR)
  Receive Date: 20170801
  Receipt Date: 20191106
  Transmission Date: 20200122
  Serious: Yes (Other)
  Sender: FDA-Public Use
  Company Number: KR-009507513-1707KOR013080

PATIENT
  Age: 59 Year
  Sex: Male
  Weight: 67.6 kg

DRUGS (7)
  1. POSACONAZOLE [Suspect]
     Active Substance: POSACONAZOLE
     Indication: FUNGAL INFECTION
     Dosage: 300 MILLIGRAM, BID
     Route: 048
     Dates: start: 20170707, end: 20170707
  2. METRONIDAZOLE. [Concomitant]
     Active Substance: METRONIDAZOLE
     Indication: INFECTION PROPHYLAXIS
     Dosage: 500 MG, TID
     Route: 048
     Dates: start: 20170715, end: 20170803
  3. IDARUBICIN HYDROCHLORIDE. [Concomitant]
     Active Substance: IDARUBICIN HYDROCHLORIDE
     Indication: ACUTE MYELOID LEUKAEMIA
     Dosage: 21 MG, QD
     Route: 042
     Dates: start: 20170707, end: 20170709
  4. CEFTAZIDIME. [Concomitant]
     Active Substance: CEFTAZIDIME
     Indication: INFECTION PROPHYLAXIS
     Dosage: 2 G, TID
     Route: 042
     Dates: start: 20170715, end: 20170720
  5. CEFAZOLIN [Concomitant]
     Active Substance: CEFAZOLIN
     Indication: INFECTION PROPHYLAXIS
     Dosage: 2 G, TID
     Route: 042
     Dates: start: 20170715, end: 20170717
  6. POSACONAZOLE [Suspect]
     Active Substance: POSACONAZOLE
     Dosage: 300 MILLIGRAM, BID
     Route: 048
     Dates: start: 20170708, end: 20170721
  7. LEVOFLOXACIN. [Concomitant]
     Active Substance: LEVOFLOXACIN
     Indication: INFECTION PROPHYLAXIS
     Dosage: 500 MG, QD
     Route: 048
     Dates: start: 20170630, end: 20170714

REACTIONS (1)
  - Febrile neutropenia [Recovered/Resolved]

NARRATIVE: CASE EVENT DATE: 20170721
